FAERS Safety Report 11715249 (Version 2)
Quarter: 2015Q4

REPORT INFORMATION
  Report Type: Spontaneous
  Country: ES (occurrence: ES)
  Receive Date: 20151109
  Receipt Date: 20151215
  Transmission Date: 20160304
  Serious: Yes (Hospitalization, Other)
  Sender: FDA-Public Use
  Company Number: ES-PFIZER INC-2015382459

PATIENT
  Age: 84 Year
  Sex: Male

DRUGS (16)
  1. MEGESTROL [Concomitant]
     Active Substance: MEGESTROL
     Dosage: 160 MG, 2X/DAY (PER 12 H)
  2. BUPRENORPHINE. [Concomitant]
     Active Substance: BUPRENORPHINE
     Dosage: 52.5 MCG/H ONE PATCH AND A HALF/72 H
  3. LORAZEPAM. [Concomitant]
     Active Substance: LORAZEPAM
     Dosage: 1 MG, DAILY
  4. CITALOPRAM [Concomitant]
     Active Substance: CITALOPRAM HYDROBROMIDE
     Dosage: 10 MG, DAILY
  5. PANTOPRAZOLE [Suspect]
     Active Substance: PANTOPRAZOLE SODIUM
     Dosage: 20 MG, DAILY
  6. ACENOCOUMAROL [Concomitant]
     Active Substance: ACENOCOUMAROL
     Dosage: 4 MG, UNK
  7. FINASTERIDE. [Concomitant]
     Active Substance: FINASTERIDE
     Dosage: 5 MG, DAILY
  8. FUROSEMIDE. [Concomitant]
     Active Substance: FUROSEMIDE
     Dosage: 40 MG, DAILY
  9. QUETIAPINE [Concomitant]
     Active Substance: QUETIAPINE
     Dosage: 25 MG, DAILY
  10. SPIRONOLACTONE. [Concomitant]
     Active Substance: SPIRONOLACTONE
     Dosage: 25 MG/48 H
  11. VALSARTAN. [Concomitant]
     Active Substance: VALSARTAN
     Dosage: 80 MG, DAILY
  12. DICLOFENAC [Concomitant]
     Active Substance: DICLOFENAC
     Dosage: 50 MG/8 H
  13. BETAHISTINE [Concomitant]
     Active Substance: BETAHISTINE
     Dosage: 16 MG/12 H
  14. PARACETAMOL [Concomitant]
     Active Substance: ACETAMINOPHEN
     Dosage: 650 MG/8 H
  15. SULPIRIDE [Concomitant]
     Active Substance: SULPIRIDE
     Dosage: 50 MG/12 H
  16. RISPERIDONE. [Concomitant]
     Active Substance: RISPERIDONE
     Dosage: 0.5 MG, DAILY

REACTIONS (2)
  - Dyspnoea at rest [Unknown]
  - Abasia [Recovered/Resolved]
